APPROVED DRUG PRODUCT: WESTCORT
Active Ingredient: HYDROCORTISONE VALERATE
Strength: 0.2% **Federal Register determination that product was not discontinued or withdrawn for safety or effectiveness reasons**
Dosage Form/Route: CREAM;TOPICAL
Application: N017950 | Product #001
Applicant: SUN PHARMACEUTICAL INDUSTRIES INC
Approved: Approved Prior to Jan 1, 1982 | RLD: Yes | RS: No | Type: DISCN